FAERS Safety Report 7259024-1 (Version None)
Quarter: 2011Q1

REPORT INFORMATION
  Report Type: 
  Country: None (occurrence: None)
  Receive Date: 20110129
  Receipt Date: 20100622
  Transmission Date: 20110831
  Serious: Yes (Hospitalization)
  Sender: FDA-Public Use
  Company Number: US-ABBOTT-10P-163-0653183-00

PATIENT
  Sex: Female
  Weight: 88.984 kg

DRUGS (13)
  1. AVANDIA [Concomitant]
     Indication: DIABETES MELLITUS
  2. GLIPIZIDE [Concomitant]
     Indication: DIABETES MELLITUS
  3. HUMIRA [Suspect]
     Indication: RHEUMATOID ARTHRITIS
  4. FENOFIBRATE [Concomitant]
     Indication: BLOOD CHOLESTEROL INCREASED
  5. ARAVA [Concomitant]
  6. HUMIRA [Suspect]
  7. CITALOPRAM [Concomitant]
     Indication: DEPRESSION
  8. ARAVA [Concomitant]
     Indication: PRODUCT USED FOR UNKNOWN INDICATION
  9. HUMIRA [Suspect]
     Indication: RHEUMATOID ARTHRITIS
     Dates: start: 20060101
  10. IBUPROFEN [Concomitant]
     Indication: ARTHRALGIA
  11. HYDROCHLOROTHIAZIDE [Concomitant]
     Indication: HYPERTENSION
  12. HYDROCHLOROTHIAZIDE [Concomitant]
     Indication: FLUID RETENTION
  13. BENAZEPRIL HYDROCHLORIDE [Concomitant]
     Indication: HYPERTENSION

REACTIONS (6)
  - PNEUMONIA [None]
  - FATIGUE [None]
  - RASH [None]
  - BUNION [None]
  - STAPHYLOCOCCAL INFECTION [None]
  - INJECTION SITE PAIN [None]
